FAERS Safety Report 21627735 (Version 2)
Quarter: 2022Q4

REPORT INFORMATION
  Report Type: Spontaneous
  Country: IN (occurrence: IN)
  Receive Date: 20221122
  Receipt Date: 20221123
  Transmission Date: 20230113
  Serious: Yes (Life-Threatening, Hospitalization, Other)
  Sender: FDA-Public Use
  Company Number: IN-MLMSERVICE-20221111-3914278-1

PATIENT
  Age: 24 Year
  Sex: Female

DRUGS (2)
  1. METHOTREXATE [Suspect]
     Active Substance: METHOTREXATE
     Indication: Philadelphia positive acute lymphocytic leukaemia
     Dosage: 24-HOUR INFUSION (HIGH-DOSE)
  2. LEUCOVORIN [Concomitant]
     Active Substance: LEUCOVORIN
     Indication: Philadelphia positive acute lymphocytic leukaemia
     Dosage: UNK

REACTIONS (9)
  - Mucosal inflammation [Recovering/Resolving]
  - Hypertransaminasaemia [Recovering/Resolving]
  - Headache [Recovering/Resolving]
  - Myelosuppression [Recovering/Resolving]
  - Rash [Recovered/Resolved with Sequelae]
  - Vomiting [Recovering/Resolving]
  - Bacterial sepsis [Recovering/Resolving]
  - Palmar-plantar erythrodysaesthesia syndrome [Recovering/Resolving]
  - Acute kidney injury [Recovering/Resolving]
